FAERS Safety Report 6882778-0 (Version None)
Quarter: 2010Q3

REPORT INFORMATION
  Report Type: 
  Country: None (occurrence: None)
  Receive Date: 20100729
  Receipt Date: 20100719
  Transmission Date: 20110219
  Serious: Yes (Other)
  Sender: FDA-Public Use
  Company Number: NL-ROCHE-716592

PATIENT
  Age: 73 Year
  Sex: Male

DRUGS (3)
  1. CAPECITABINE [Suspect]
     Indication: GASTRIC CANCER
     Dosage: 2 CYCLES OF EOC PRIOR TO SURGERY.
     Route: 065
  2. EPIRUBICIN [Suspect]
     Indication: GASTRIC CANCER
     Dosage: 2 CYCLES OF EOC PRIOR TO SURGERY.
     Route: 065
  3. OXALIPLATIN [Suspect]
     Indication: GASTRIC CANCER
     Dosage: 2 CYCLES OF EOC PRIOR TO SURGERY.
     Route: 065

REACTIONS (4)
  - DISEASE RECURRENCE [None]
  - FATIGUE [None]
  - METASTASES TO LIVER [None]
  - NEUROPATHY PERIPHERAL [None]
